FAERS Safety Report 6426506-1 (Version None)
Quarter: 2009Q4

REPORT INFORMATION
  Report Type: 
  Country: None (occurrence: None)
  Receive Date: 20091030
  Receipt Date: 20091022
  Transmission Date: 20100525
  Serious: Yes (Hospitalization)
  Sender: FDA-Public Use
  Company Number: 2009AL006767

PATIENT
  Age: 44 Year
  Sex: Female

DRUGS (4)
  1. CARBAMAZEPINE [Suspect]
     Indication: AFFECTIVE DISORDER
     Dosage: 600 MG
  2. RISPERIDONE [Concomitant]
  3. ZOLPIDEM [Concomitant]
  4. QUETIAPINE [Concomitant]

REACTIONS (6)
  - AGITATION [None]
  - DRUG INTERACTION [None]
  - DRUG LEVEL DECREASED [None]
  - DRUG LEVEL INCREASED [None]
  - NERVOUSNESS [None]
  - PSYCHOTIC DISORDER [None]
